FAERS Safety Report 14030110 (Version 6)
Quarter: 2019Q4

REPORT INFORMATION
  Report Type: Report from Study
  Country: US (occurrence: US)
  Receive Date: 20171002
  Receipt Date: 20191120
  Transmission Date: 20200122
  Serious: Yes (Death, Hospitalization)
  Sender: FDA-Public Use
  Company Number: US-ACTELION-A-NJ2017-160145

PATIENT
  Sex: Female
  Weight: 68.93 kg

DRUGS (4)
  1. VELETRI [Suspect]
     Active Substance: EPOPROSTENOL
     Indication: PULMONARY HYPERTENSION
     Dosage: 45 NG/KG, PER MIN
     Route: 042
  2. COUMADIN [Concomitant]
     Active Substance: WARFARIN SODIUM
  3. REVATIO [Concomitant]
     Active Substance: SILDENAFIL CITRATE
  4. LETAIRIS [Concomitant]
     Active Substance: AMBRISENTAN

REACTIONS (20)
  - Dyspnoea at rest [Unknown]
  - Arteriovenous malformation [Unknown]
  - Platelet count decreased [Unknown]
  - Pneumothorax [Unknown]
  - Pneumonia [Unknown]
  - Sepsis [Unknown]
  - Oedema [Unknown]
  - Infection [Unknown]
  - Oesophageal candidiasis [Unknown]
  - Weight increased [Recovering/Resolving]
  - Therapeutic embolisation [Unknown]
  - Dyspnoea [Unknown]
  - Dyspnoea exertional [Unknown]
  - Muscle tightness [Unknown]
  - Flushing [Not Recovered/Not Resolved]
  - Right ventricular failure [Fatal]
  - Gastrointestinal haemorrhage [Unknown]
  - Transfusion [Unknown]
  - Rash macular [Unknown]
  - Pain in jaw [Not Recovered/Not Resolved]
